FAERS Safety Report 4427342-8 (Version None)
Quarter: 2004Q3

REPORT INFORMATION
  Report Type: 
  Country: None (occurrence: None)
  Receive Date: 20040811
  Receipt Date: 20040730
  Transmission Date: 20050211
  Serious: Yes (Other)
  Sender: FDA-Public Use
  Company Number: 8006227

PATIENT
  Age: 10 Year
  Sex: Male
  Weight: 24.09 kg

DRUGS (2)
  1. KEPPRA [Suspect]
     Indication: CONVULSION
     Dosage: 250 MG 2/D PO
     Route: 048
     Dates: start: 20040411, end: 20040517
  2. KEPPRA [Suspect]
     Indication: CONVULSION
     Dosage: 125 MG PO
     Route: 048
     Dates: start: 20040521

REACTIONS (4)
  - ALOPECIA [None]
  - COUGH [None]
  - DECREASED APPETITE [None]
  - PLATELET COUNT DECREASED [None]
